FAERS Safety Report 10978790 (Version 5)
Quarter: 2015Q2

REPORT INFORMATION
  Report Type: Report from Study
  Country: CZ (occurrence: CZ)
  Receive Date: 20150402
  Receipt Date: 20150514
  Transmission Date: 20150821
  Serious: Yes (Hospitalization)
  Sender: FDA-Public Use
  Company Number: CZ-GILEAD-2015-0145888

PATIENT
  Age: 64 Year
  Sex: Male
  Weight: 83 kg

DRUGS (15)
  1. IDELALISIB [Suspect]
     Active Substance: IDELALISIB
     Indication: B-CELL LYMPHOMA
     Dosage: 150 MG, BID
     Route: 048
     Dates: start: 20150302, end: 20150312
  2. RANISEN [Concomitant]
     Dosage: UNK
  3. BERODUAL [Concomitant]
     Active Substance: FENOTEROL HYDROBROMIDE\IPRATROPIUM BROMIDE
  4. THEOPLUS [Concomitant]
     Dosage: UNK
  5. MAGNESIUM [Concomitant]
     Active Substance: MAGNESIUM
  6. DETRALEX [Concomitant]
     Active Substance: DIOSMIN\HESPERIDIN
     Dosage: UNK
  7. LAKEA [Concomitant]
  8. KALNORMIN [Concomitant]
     Active Substance: POTASSIUM CHLORIDE
  9. BENDAMUSTINE [Suspect]
     Active Substance: BENDAMUSTINE
     Indication: B-CELL LYMPHOMA
     Dosage: 185 MG, CYCLICAL
     Route: 042
     Dates: start: 20150302, end: 20150303
  10. INDAP [Concomitant]
  11. VEROGALID [Concomitant]
     Dosage: UNK
  12. MILURIT [Concomitant]
     Active Substance: ALLOPURINOL
     Dosage: UNK
  13. RITUXIMAB [Suspect]
     Active Substance: RITUXIMAB
     Indication: B-CELL LYMPHOMA
     Dosage: UNK UNK, CYCLICAL
     Route: 042
     Dates: start: 20150302, end: 20150302
  14. BETAHISTINE [Concomitant]
     Active Substance: BETAHISTINE
     Dosage: UNK
  15. SANGONA [Concomitant]

REACTIONS (2)
  - Vertigo [Recovered/Resolved with Sequelae]
  - Vomiting [Recovered/Resolved]

NARRATIVE: CASE EVENT DATE: 20150317
